FAERS Safety Report 6222099-2 (Version None)
Quarter: 2009Q2

REPORT INFORMATION
  Report Type: 
  Country: None (occurrence: None)
  Receive Date: 20090611
  Receipt Date: 20090603
  Transmission Date: 20091009
  Serious: Yes (Hospitalization)
  Sender: FDA-Public Use
  Company Number: CH-ASTRAZENECA-2009PK00417

PATIENT
  Age: 27 Year
  Sex: Male

DRUGS (3)
  1. SEROQUEL [Suspect]
     Indication: SCHIZOPHRENIA
     Route: 048
     Dates: start: 20081016, end: 20081019
  2. SEROQUEL [Suspect]
     Route: 048
     Dates: start: 20081020, end: 20081027
  3. SEROQUEL [Suspect]
     Route: 048
     Dates: start: 20081028, end: 20081105

REACTIONS (3)
  - DRUG LEVEL INCREASED [None]
  - TACHYCARDIA [None]
  - VOMITING [None]
